FAERS Safety Report 9464465 (Version 1)
Quarter: 2013Q3

REPORT INFORMATION
  Report Type: Spontaneous
  Country: US (occurrence: US)
  Receive Date: 20130819
  Receipt Date: 20130819
  Transmission Date: 20140515
  Serious: Yes (Hospitalization, Other)
  Sender: FDA-Public Use
  Company Number: US-BAXTER-2013BAX032025

PATIENT
  Sex: Male

DRUGS (2)
  1. DIANEAL LOW CALCIUM (ULTRABAG) [Suspect]
     Indication: PERITONEAL DIALYSIS
     Route: 033
     Dates: start: 20120606
  2. COUMADIN [Suspect]
     Indication: CARDIAC VALVE DISEASE
     Route: 065

REACTIONS (2)
  - Cardiac valve disease [Unknown]
  - General physical health deterioration [Recovering/Resolving]
